FAERS Safety Report 16030544 (Version 2)
Quarter: 2019Q1

REPORT INFORMATION
  Report Type: Report from Study
  Country: ZA (occurrence: ZA)
  Receive Date: 20190304
  Receipt Date: 20190325
  Transmission Date: 20190418
  Serious: Yes (Hospitalization)
  Sender: FDA-Public Use
  Company Number: ZA-SA-2019SA053992

PATIENT
  Age: 51 Year
  Sex: Male

DRUGS (6)
  1. OPTISULIN [INSULIN GLARGINE] [Suspect]
     Active Substance: INSULIN GLARGINE
     Dosage: 23 U, HS
     Dates: start: 20170101
  2. GLUCOPHAGE [Concomitant]
     Active Substance: METFORMIN HYDROCHLORIDE
     Dosage: 1000 MG, QD
     Dates: start: 20120101
  3. INSULIN GLULISINE [Suspect]
     Active Substance: INSULIN GLULISINE
     Dosage: 3 ML, BS -2 UNITES
     Dates: start: 20190211
  4. MYLAN OXYBUTYNIN [Concomitant]
     Active Substance: OXYBUTYNIN
     Dosage: UNK
     Dates: start: 20150101
  5. VASTOR [ATORVASTATIN] [Concomitant]
     Dosage: 20 MG, HS
     Dates: start: 20120101
  6. VENLOR [Concomitant]
     Active Substance: VENLAFAXINE HYDROCHLORIDE
     Dosage: 150 MG, HS
     Dates: start: 20100101

REACTIONS (5)
  - Glycosylated haemoglobin increased [Unknown]
  - Nephrolithiasis [Recovered/Resolved]
  - Pain [Recovered/Resolved]
  - Blood glucose fluctuation [Recovered/Resolved]
  - Intentional product misuse [Unknown]

NARRATIVE: CASE EVENT DATE: 20190216
